FAERS Safety Report 8429103-1 (Version None)
Quarter: 2012Q2

REPORT INFORMATION
  Report Type: 
  Country: None (occurrence: None)
  Receive Date: 20120606
  Receipt Date: 20120523
  Transmission Date: 20120825
  Serious: Yes (Life-Threatening, Hospitalization, Other)
  Sender: FDA-Public Use
  Company Number: 2012P1018849

PATIENT
  Sex: Female

DRUGS (6)
  1. CEFAZOLIN [Suspect]
  2. ANTI NAUSEA MEDICINE [Concomitant]
  3. EPIDURAL [Concomitant]
  4. CEFAZOLIN [Suspect]
     Indication: CAESAREAN SECTION
     Dosage: 100 MG;X1;IV
     Route: 042
     Dates: start: 20120427, end: 20120427
  5. CEFAZOLIN [Suspect]
     Indication: PREOPERATIVE CARE
     Dosage: 100 MG;X1;IV
     Route: 042
     Dates: start: 20120427, end: 20120427
  6. CEFAZOLIN [Suspect]
     Indication: INFECTION PROPHYLAXIS
     Dosage: 100 MG;X1;IV
     Route: 042
     Dates: start: 20120427, end: 20120427

REACTIONS (4)
  - VENTRICULAR TACHYCARDIA [None]
  - MATERNAL EXPOSURE DURING PREGNANCY [None]
  - ANAPHYLACTIC REACTION [None]
  - CARDIO-RESPIRATORY ARREST [None]
